FAERS Safety Report 5636044-1 (Version None)
Quarter: 2008Q1

REPORT INFORMATION
  Report Type: 
  Country: None (occurrence: None)
  Receive Date: 20080220
  Receipt Date: 20080220
  Transmission Date: 20080703
  Serious: Yes (Other)
  Sender: FDA-Public Use
  Company Number: None

PATIENT
  Age: 40 Year
  Sex: Female
  Weight: 68.0396 kg

DRUGS (1)
  1. PAROXETINE [Suspect]
     Indication: ANXIETY
     Dosage: 40MG DAILY PO
     Route: 048
     Dates: start: 20070601, end: 20071111

REACTIONS (19)
  - ABNORMAL BEHAVIOUR [None]
  - ALCOHOL USE [None]
  - ANXIETY [None]
  - BIPOLAR DISORDER [None]
  - CONFUSIONAL STATE [None]
  - DELUSION [None]
  - DRUG EFFECT DECREASED [None]
  - DRUG WITHDRAWAL SYNDROME [None]
  - EMOTIONAL DISTRESS [None]
  - FEELING ABNORMAL [None]
  - FLIGHT OF IDEAS [None]
  - GASTRIC DISORDER [None]
  - IMPULSIVE BEHAVIOUR [None]
  - MANIA [None]
  - OBSESSIVE-COMPULSIVE DISORDER [None]
  - PAIN [None]
  - PSYCHOMOTOR HYPERACTIVITY [None]
  - SMOKER [None]
  - SUICIDAL IDEATION [None]
